FAERS Safety Report 7473876-1 (Version None)
Quarter: 2011Q2

REPORT INFORMATION
  Report Type: 
  Country: None (occurrence: None)
  Receive Date: 20110511
  Receipt Date: 20110509
  Transmission Date: 20111010
  Serious: Yes (Hospitalization, Other)
  Sender: FDA-Public Use
  Company Number: US-TEVA-278107USA

PATIENT
  Sex: Female

DRUGS (21)
  1. COPAXONE [Suspect]
     Indication: MULTIPLE SCLEROSIS
     Dosage: 20 MILLIGRAM;
     Route: 058
     Dates: start: 20110319, end: 20110408
  2. ASCORBIC ACID [Concomitant]
  3. POTASSIUM CHLORIDE [Concomitant]
  4. METRONIDAZOLE [Concomitant]
  5. LORAZEPAM [Concomitant]
  6. METHYLPREDNISOLONE SODIUM SUCCINATE [Concomitant]
  7. ERGOCALCIFEROL [Concomitant]
  8. INSULIN LISPRO [Concomitant]
  9. LANTUS [Concomitant]
  10. CALCIUM CARBONATE [Concomitant]
  11. LISINOPRIL [Concomitant]
  12. MELPHALAN HYDROCHLORIDE [Concomitant]
  13. FLUTICASONE PROPIONATE [Concomitant]
  14. HYDROCHLOROTHIAZIDE [Concomitant]
  15. GABAPENTIN [Concomitant]
  16. DIPHENHYDRAMINE HYDROCHLORIDE [Concomitant]
  17. TRAMADOL HYDROCHLORIDE [Concomitant]
  18. BACLOFEN [Concomitant]
  19. FUROSEMIDE [Concomitant]
  20. ACETYL SALICYLIC ACID USP BAT [Concomitant]
  21. ACETAMINOPHEN [Concomitant]

REACTIONS (4)
  - CONVULSION [None]
  - OEDEMA PERIPHERAL [None]
  - URTICARIA [None]
  - SWOLLEN TONGUE [None]
